FAERS Safety Report 9046365 (Version 1)
Quarter: 2013Q1

REPORT INFORMATION
  Report Type: Spontaneous
  Country: US (occurrence: None)
  Receive Date: 20130128
  Receipt Date: 20130128
  Transmission Date: 20140127
  Serious: Yes (Hospitalization)
  Sender: FDA-Public Use
  Company Number: None

PATIENT
  Age: 63 Year
  Sex: Male
  Weight: 141.6 kg

DRUGS (1)
  1. DIGOXIN [Suspect]
     Indication: ATRIAL FIBRILLATION
     Route: 048
     Dates: start: 20120102, end: 20121128

REACTIONS (5)
  - Chest discomfort [None]
  - Nausea [None]
  - Vomiting [None]
  - Chest pain [None]
  - Cardioactive drug level increased [None]
